FAERS Safety Report 12603095 (Version 8)
Quarter: 2017Q1

REPORT INFORMATION
  Report Type: Spontaneous
  Country: US (occurrence: US)
  Receive Date: 20160728
  Receipt Date: 20170224
  Transmission Date: 20170428
  Serious: Yes (Other)
  Sender: FDA-Public Use
  Company Number: PHHY2016US103240

PATIENT
  Age: 23 Year
  Sex: Female

DRUGS (2)
  1. ZOFRAN [Suspect]
     Active Substance: ONDANSETRON HYDROCHLORIDE
     Indication: VOMITING IN PREGNANCY
     Dosage: 8 MG, TID
     Route: 048
     Dates: start: 20131011, end: 20140405
  2. ZOFRAN [Suspect]
     Active Substance: ONDANSETRON HYDROCHLORIDE
     Indication: VOMITING IN PREGNANCY
     Route: 042

REACTIONS (14)
  - Premature labour [Unknown]
  - Urinary tract infection [Unknown]
  - Premature delivery [Unknown]
  - Iron deficiency anaemia [Unknown]
  - Uterine haemorrhage [Unknown]
  - Bronchitis [Unknown]
  - Subchorionic haematoma [Unknown]
  - Depression [Unknown]
  - Injury [Unknown]
  - Vaginal haemorrhage [Unknown]
  - Eczema [Unknown]
  - Product use issue [Unknown]
  - Maternal exposure during pregnancy [Unknown]
  - Premature separation of placenta [Unknown]

NARRATIVE: CASE EVENT DATE: 20131116
